FAERS Safety Report 12756047 (Version 4)
Quarter: 2016Q4

REPORT INFORMATION
  Report Type: Spontaneous
  Country: US (occurrence: US)
  Receive Date: 20160916
  Receipt Date: 20161128
  Transmission Date: 20170207
  Serious: Yes (Other)
  Sender: FDA-Public Use
  Company Number: US-AMGEN-USASP2016123669

PATIENT
  Age: 88 Year
  Sex: Female

DRUGS (5)
  1. PROLIA [Suspect]
     Active Substance: DENOSUMAB
     Indication: OSTEOPOROSIS POSTMENOPAUSAL
     Dosage: UNK, Q6MO
     Route: 065
  2. PRADAXA [Concomitant]
     Active Substance: DABIGATRAN ETEXILATE MESYLATE
  3. CALCIUM [Concomitant]
     Active Substance: CALCIUM
  4. POTASSIUM [Concomitant]
     Active Substance: POTASSIUM
  5. GABAPENTIN. [Concomitant]
     Active Substance: GABAPENTIN

REACTIONS (8)
  - Infection [Unknown]
  - Joint swelling [Unknown]
  - Restless legs syndrome [Unknown]
  - Cellulitis [Unknown]
  - Jaw disorder [Not Recovered/Not Resolved]
  - Cardiac pacemaker insertion [Unknown]
  - Visual impairment [Unknown]
  - Gingival disorder [Not Recovered/Not Resolved]

NARRATIVE: CASE EVENT DATE: 201108
